FAERS Safety Report 20532103 (Version 4)
Quarter: 2022Q3

REPORT INFORMATION
  Report Type: Spontaneous
  Country: CA (occurrence: CA)
  Receive Date: 20220301
  Receipt Date: 20220715
  Transmission Date: 20221026
  Serious: Yes (Life-Threatening, Hospitalization, Other)
  Sender: FDA-Public Use
  Company Number: CA-ROCHE-2172231

PATIENT
  Age: 37 Year
  Sex: Female

DRUGS (255)
  1. CLONAZEPAM [Suspect]
     Active Substance: CLONAZEPAM
     Indication: Product used for unknown indication
     Dosage: UNK
     Dates: start: 20210524
  2. XOLAIR [Suspect]
     Active Substance: OMALIZUMAB
     Indication: Angioedema
     Dosage: UNK
     Route: 058
     Dates: start: 20180120
  3. XOLAIR [Suspect]
     Active Substance: OMALIZUMAB
     Indication: Chronic spontaneous urticaria
     Dosage: UNK
     Route: 058
     Dates: start: 20180120
  4. XOLAIR [Suspect]
     Active Substance: OMALIZUMAB
     Indication: Anaphylactic reaction
     Dosage: UNK
     Route: 058
     Dates: start: 20180120
  5. XOLAIR [Suspect]
     Active Substance: OMALIZUMAB
     Indication: Urticaria
     Dosage: UNK
     Route: 058
     Dates: start: 20180120
  6. XOLAIR [Suspect]
     Active Substance: OMALIZUMAB
     Indication: Angioedema
     Dosage: 450 MG, Q3WEEKS
     Route: 058
     Dates: start: 201802
  7. XOLAIR [Suspect]
     Active Substance: OMALIZUMAB
     Indication: Chronic spontaneous urticaria
     Dosage: 450 MG, Q3WEEKS
     Route: 058
     Dates: start: 201802
  8. XOLAIR [Suspect]
     Active Substance: OMALIZUMAB
     Indication: Anaphylactic reaction
     Dosage: 450 MG, Q3WEEKS
     Route: 058
     Dates: start: 201802
  9. XOLAIR [Suspect]
     Active Substance: OMALIZUMAB
     Indication: Urticaria
     Dosage: 450 MG, Q3WEEKS
     Route: 058
     Dates: start: 201802
  10. XOLAIR [Suspect]
     Active Substance: OMALIZUMAB
     Indication: Angioedema
     Dosage: 300 MG, Q3WEEKS
     Route: 058
     Dates: start: 20180305
  11. XOLAIR [Suspect]
     Active Substance: OMALIZUMAB
     Indication: Chronic spontaneous urticaria
     Dosage: 300 MG, Q3WEEKS
     Route: 058
     Dates: start: 20180305
  12. XOLAIR [Suspect]
     Active Substance: OMALIZUMAB
     Indication: Anaphylactic reaction
     Dosage: 300 MG, Q3WEEKS
     Route: 058
     Dates: start: 20180305
  13. XOLAIR [Suspect]
     Active Substance: OMALIZUMAB
     Indication: Urticaria
     Dosage: 300 MG, Q3WEEKS
     Route: 058
     Dates: start: 20180305
  14. XOLAIR [Suspect]
     Active Substance: OMALIZUMAB
     Indication: Angioedema
     Route: 058
     Dates: start: 20180307
  15. XOLAIR [Suspect]
     Active Substance: OMALIZUMAB
     Indication: Chronic spontaneous urticaria
     Route: 058
     Dates: start: 20180307
  16. XOLAIR [Suspect]
     Active Substance: OMALIZUMAB
     Indication: Anaphylactic reaction
     Route: 058
     Dates: start: 20180307
  17. XOLAIR [Suspect]
     Active Substance: OMALIZUMAB
     Indication: Urticaria
     Route: 058
     Dates: start: 20180307
  18. XOLAIR [Suspect]
     Active Substance: OMALIZUMAB
     Indication: Angioedema
     Dosage: 300 MG, Q4WEEKS
     Route: 058
     Dates: start: 20180329
  19. XOLAIR [Suspect]
     Active Substance: OMALIZUMAB
     Indication: Chronic spontaneous urticaria
     Dosage: 300 MG, Q4WEEKS
     Route: 058
     Dates: start: 20180329
  20. XOLAIR [Suspect]
     Active Substance: OMALIZUMAB
     Indication: Anaphylactic reaction
     Dosage: 300 MG, Q4WEEKS
     Route: 058
     Dates: start: 20180329
  21. XOLAIR [Suspect]
     Active Substance: OMALIZUMAB
     Indication: Urticaria
     Dosage: 300 MG, Q4WEEKS
     Route: 058
     Dates: start: 20180329
  22. XOLAIR [Suspect]
     Active Substance: OMALIZUMAB
     Indication: Angioedema
     Dosage: 300 MG, Q4WEEKS
     Route: 058
     Dates: start: 20180427
  23. XOLAIR [Suspect]
     Active Substance: OMALIZUMAB
     Indication: Chronic spontaneous urticaria
     Dosage: 300 MG, Q4WEEKS
     Route: 058
     Dates: start: 20180427
  24. XOLAIR [Suspect]
     Active Substance: OMALIZUMAB
     Indication: Anaphylactic reaction
     Dosage: 300 MG, Q4WEEKS
     Route: 058
     Dates: start: 20180427
  25. XOLAIR [Suspect]
     Active Substance: OMALIZUMAB
     Indication: Urticaria
     Dosage: 300 MG, Q4WEEKS
     Route: 058
     Dates: start: 20180427
  26. XOLAIR [Suspect]
     Active Substance: OMALIZUMAB
     Indication: Angioedema
     Dosage: 300 MG, Q4WEEKS
     Route: 058
     Dates: start: 20180713
  27. XOLAIR [Suspect]
     Active Substance: OMALIZUMAB
     Indication: Chronic spontaneous urticaria
     Dosage: 300 MG, Q4WEEKS
     Route: 058
     Dates: start: 20180713
  28. XOLAIR [Suspect]
     Active Substance: OMALIZUMAB
     Indication: Anaphylactic reaction
     Dosage: 300 MG, Q4WEEKS
     Route: 058
     Dates: start: 20180713
  29. XOLAIR [Suspect]
     Active Substance: OMALIZUMAB
     Indication: Urticaria
     Dosage: 300 MG, Q4WEEKS
     Route: 058
     Dates: start: 20180713
  30. XOLAIR [Suspect]
     Active Substance: OMALIZUMAB
     Indication: Angioedema
     Dosage: 300 MG, Q4WEEKS
     Route: 058
     Dates: start: 20180814
  31. XOLAIR [Suspect]
     Active Substance: OMALIZUMAB
     Indication: Chronic spontaneous urticaria
     Dosage: 300 MG, Q4WEEKS
     Route: 058
     Dates: start: 20180814
  32. XOLAIR [Suspect]
     Active Substance: OMALIZUMAB
     Indication: Anaphylactic reaction
     Dosage: 300 MG, Q4WEEKS
     Route: 058
     Dates: start: 20180814
  33. XOLAIR [Suspect]
     Active Substance: OMALIZUMAB
     Indication: Urticaria
     Dosage: 300 MG, Q4WEEKS
     Route: 058
     Dates: start: 20180814
  34. XOLAIR [Suspect]
     Active Substance: OMALIZUMAB
     Indication: Angioedema
     Dosage: 300 MG, Q3WEEKS
     Route: 058
     Dates: start: 20180904
  35. XOLAIR [Suspect]
     Active Substance: OMALIZUMAB
     Indication: Chronic spontaneous urticaria
     Dosage: 300 MG, Q3WEEKS
     Route: 058
     Dates: start: 20180904
  36. XOLAIR [Suspect]
     Active Substance: OMALIZUMAB
     Indication: Anaphylactic reaction
     Dosage: 300 MG, Q3WEEKS
     Route: 058
     Dates: start: 20180904
  37. XOLAIR [Suspect]
     Active Substance: OMALIZUMAB
     Indication: Urticaria
     Dosage: 300 MG, Q3WEEKS
     Route: 058
     Dates: start: 20180904
  38. XOLAIR [Suspect]
     Active Substance: OMALIZUMAB
     Indication: Angioedema
     Dosage: 300 MG, Q3WEEKS
     Route: 058
     Dates: start: 20180925
  39. XOLAIR [Suspect]
     Active Substance: OMALIZUMAB
     Indication: Chronic spontaneous urticaria
     Dosage: 300 MG, Q3WEEKS
     Route: 058
     Dates: start: 20180925
  40. XOLAIR [Suspect]
     Active Substance: OMALIZUMAB
     Indication: Anaphylactic reaction
     Dosage: 300 MG, Q3WEEKS
     Route: 058
     Dates: start: 20180925
  41. XOLAIR [Suspect]
     Active Substance: OMALIZUMAB
     Indication: Urticaria
     Dosage: 300 MG, Q3WEEKS
     Route: 058
     Dates: start: 20180925
  42. XOLAIR [Suspect]
     Active Substance: OMALIZUMAB
     Indication: Angioedema
     Dosage: 300 MG, Q3WEEKS
     Route: 058
     Dates: start: 20181105
  43. XOLAIR [Suspect]
     Active Substance: OMALIZUMAB
     Indication: Chronic spontaneous urticaria
     Dosage: 300 MG, Q3WEEKS
     Route: 058
     Dates: start: 20181105
  44. XOLAIR [Suspect]
     Active Substance: OMALIZUMAB
     Indication: Anaphylactic reaction
     Dosage: 300 MG, Q3WEEKS
     Route: 058
     Dates: start: 20181105
  45. XOLAIR [Suspect]
     Active Substance: OMALIZUMAB
     Indication: Urticaria
     Dosage: 300 MG, Q3WEEKS
     Route: 058
     Dates: start: 20181105
  46. XOLAIR [Suspect]
     Active Substance: OMALIZUMAB
     Indication: Angioedema
     Dosage: 300 MG, Q3WEEKS
     Route: 058
     Dates: start: 20181127
  47. XOLAIR [Suspect]
     Active Substance: OMALIZUMAB
     Indication: Chronic spontaneous urticaria
     Dosage: 300 MG, Q3WEEKS
     Route: 058
     Dates: start: 20181127
  48. XOLAIR [Suspect]
     Active Substance: OMALIZUMAB
     Indication: Anaphylactic reaction
     Dosage: 300 MG, Q3WEEKS
     Route: 058
     Dates: start: 20181127
  49. XOLAIR [Suspect]
     Active Substance: OMALIZUMAB
     Indication: Urticaria
     Dosage: 300 MG, Q3WEEKS
     Route: 058
     Dates: start: 20181127
  50. XOLAIR [Suspect]
     Active Substance: OMALIZUMAB
     Indication: Angioedema
     Dosage: 450 MG, Q3WEEKS
     Route: 058
     Dates: start: 20181218
  51. XOLAIR [Suspect]
     Active Substance: OMALIZUMAB
     Indication: Chronic spontaneous urticaria
     Dosage: 450 MG, Q3WEEKS
     Route: 058
     Dates: start: 20181218
  52. XOLAIR [Suspect]
     Active Substance: OMALIZUMAB
     Indication: Anaphylactic reaction
     Dosage: 450 MG, Q3WEEKS
     Route: 058
     Dates: start: 20181218
  53. XOLAIR [Suspect]
     Active Substance: OMALIZUMAB
     Indication: Urticaria
     Dosage: 450 MG, Q3WEEKS
     Route: 058
     Dates: start: 20181218
  54. XOLAIR [Suspect]
     Active Substance: OMALIZUMAB
     Indication: Angioedema
     Dosage: 450 MG, Q3WEEKS
     Route: 058
     Dates: start: 20190108
  55. XOLAIR [Suspect]
     Active Substance: OMALIZUMAB
     Indication: Chronic spontaneous urticaria
     Dosage: 450 MG, Q3WEEKS
     Route: 058
     Dates: start: 20190108
  56. XOLAIR [Suspect]
     Active Substance: OMALIZUMAB
     Indication: Anaphylactic reaction
     Dosage: 450 MG, Q3WEEKS
     Route: 058
     Dates: start: 20190108
  57. XOLAIR [Suspect]
     Active Substance: OMALIZUMAB
     Indication: Urticaria
     Dosage: 450 MG, Q3WEEKS
     Route: 058
     Dates: start: 20190108
  58. XOLAIR [Suspect]
     Active Substance: OMALIZUMAB
     Indication: Angioedema
     Route: 058
     Dates: start: 20190127
  59. XOLAIR [Suspect]
     Active Substance: OMALIZUMAB
     Indication: Chronic spontaneous urticaria
     Route: 058
     Dates: start: 20190127
  60. XOLAIR [Suspect]
     Active Substance: OMALIZUMAB
     Indication: Anaphylactic reaction
     Route: 058
     Dates: start: 20190127
  61. XOLAIR [Suspect]
     Active Substance: OMALIZUMAB
     Indication: Urticaria
     Route: 058
     Dates: start: 20190127
  62. XOLAIR [Suspect]
     Active Substance: OMALIZUMAB
     Indication: Angioedema
     Dosage: 300 MG, Q3WEEKS
     Route: 058
     Dates: start: 20190129
  63. XOLAIR [Suspect]
     Active Substance: OMALIZUMAB
     Indication: Chronic spontaneous urticaria
     Dosage: 300 MG, Q3WEEKS
     Route: 058
     Dates: start: 20190129
  64. XOLAIR [Suspect]
     Active Substance: OMALIZUMAB
     Indication: Anaphylactic reaction
     Dosage: 300 MG, Q3WEEKS
     Route: 058
     Dates: start: 20190129
  65. XOLAIR [Suspect]
     Active Substance: OMALIZUMAB
     Indication: Urticaria
     Dosage: 300 MG, Q3WEEKS
     Route: 058
     Dates: start: 20190129
  66. XOLAIR [Suspect]
     Active Substance: OMALIZUMAB
     Indication: Angioedema
     Dosage: 150 MG
     Route: 058
     Dates: start: 20190212
  67. XOLAIR [Suspect]
     Active Substance: OMALIZUMAB
     Indication: Chronic spontaneous urticaria
     Dosage: 150 MG
     Route: 058
     Dates: start: 20190212
  68. XOLAIR [Suspect]
     Active Substance: OMALIZUMAB
     Indication: Anaphylactic reaction
     Dosage: 150 MG
     Route: 058
     Dates: start: 20190212
  69. XOLAIR [Suspect]
     Active Substance: OMALIZUMAB
     Indication: Urticaria
     Dosage: 150 MG
     Route: 058
     Dates: start: 20190212
  70. XOLAIR [Suspect]
     Active Substance: OMALIZUMAB
     Indication: Angioedema
     Dosage: 300 MG, Q3WEEKS
     Route: 058
     Dates: start: 20190219
  71. XOLAIR [Suspect]
     Active Substance: OMALIZUMAB
     Indication: Chronic spontaneous urticaria
     Dosage: 300 MG, Q3WEEKS
     Route: 058
     Dates: start: 20190219
  72. XOLAIR [Suspect]
     Active Substance: OMALIZUMAB
     Indication: Anaphylactic reaction
     Dosage: 300 MG, Q3WEEKS
     Route: 058
     Dates: start: 20190219
  73. XOLAIR [Suspect]
     Active Substance: OMALIZUMAB
     Indication: Urticaria
     Dosage: 300 MG, Q3WEEKS
     Route: 058
     Dates: start: 20190219
  74. XOLAIR [Suspect]
     Active Substance: OMALIZUMAB
     Indication: Angioedema
     Route: 058
     Dates: start: 20190401
  75. XOLAIR [Suspect]
     Active Substance: OMALIZUMAB
     Indication: Chronic spontaneous urticaria
     Route: 058
     Dates: start: 20190401
  76. XOLAIR [Suspect]
     Active Substance: OMALIZUMAB
     Indication: Anaphylactic reaction
     Route: 058
     Dates: start: 20190401
  77. XOLAIR [Suspect]
     Active Substance: OMALIZUMAB
     Indication: Urticaria
     Route: 058
     Dates: start: 20190401
  78. XOLAIR [Suspect]
     Active Substance: OMALIZUMAB
     Indication: Angioedema
     Dosage: 150 MG
     Route: 058
     Dates: start: 20190402
  79. XOLAIR [Suspect]
     Active Substance: OMALIZUMAB
     Indication: Chronic spontaneous urticaria
     Dosage: 150 MG
     Route: 058
     Dates: start: 20190402
  80. XOLAIR [Suspect]
     Active Substance: OMALIZUMAB
     Indication: Anaphylactic reaction
     Dosage: 150 MG
     Route: 058
     Dates: start: 20190402
  81. XOLAIR [Suspect]
     Active Substance: OMALIZUMAB
     Indication: Urticaria
     Dosage: 150 MG
     Route: 058
     Dates: start: 20190402
  82. XOLAIR [Suspect]
     Active Substance: OMALIZUMAB
     Indication: Angioedema
     Dosage: UNK
     Route: 058
     Dates: start: 20190422
  83. XOLAIR [Suspect]
     Active Substance: OMALIZUMAB
     Indication: Chronic spontaneous urticaria
     Dosage: UNK
     Route: 058
     Dates: start: 20190422
  84. XOLAIR [Suspect]
     Active Substance: OMALIZUMAB
     Indication: Anaphylactic reaction
     Dosage: UNK
     Route: 058
     Dates: start: 20190422
  85. XOLAIR [Suspect]
     Active Substance: OMALIZUMAB
     Indication: Urticaria
     Dosage: UNK
     Route: 058
     Dates: start: 20190422
  86. XOLAIR [Suspect]
     Active Substance: OMALIZUMAB
     Indication: Angioedema
     Dosage: 300 MG, Q3WEEKS
     Route: 058
     Dates: start: 20190514
  87. XOLAIR [Suspect]
     Active Substance: OMALIZUMAB
     Indication: Chronic spontaneous urticaria
     Dosage: 300 MG, Q3WEEKS
     Route: 058
     Dates: start: 20190514
  88. XOLAIR [Suspect]
     Active Substance: OMALIZUMAB
     Indication: Anaphylactic reaction
     Dosage: 300 MG, Q3WEEKS
     Route: 058
     Dates: start: 20190514
  89. XOLAIR [Suspect]
     Active Substance: OMALIZUMAB
     Indication: Urticaria
     Dosage: 300 MG, Q3WEEKS
     Route: 058
     Dates: start: 20190514
  90. XOLAIR [Suspect]
     Active Substance: OMALIZUMAB
     Indication: Angioedema
     Dosage: UNK
     Route: 058
     Dates: start: 20190604
  91. XOLAIR [Suspect]
     Active Substance: OMALIZUMAB
     Indication: Chronic spontaneous urticaria
     Dosage: UNK
     Route: 058
     Dates: start: 20190604
  92. XOLAIR [Suspect]
     Active Substance: OMALIZUMAB
     Indication: Anaphylactic reaction
     Dosage: UNK
     Route: 058
     Dates: start: 20190604
  93. XOLAIR [Suspect]
     Active Substance: OMALIZUMAB
     Indication: Urticaria
     Dosage: UNK
     Route: 058
     Dates: start: 20190604
  94. XOLAIR [Suspect]
     Active Substance: OMALIZUMAB
     Indication: Angioedema
     Dosage: UNK
     Route: 058
     Dates: start: 20190625
  95. XOLAIR [Suspect]
     Active Substance: OMALIZUMAB
     Indication: Chronic spontaneous urticaria
     Dosage: UNK
     Route: 058
     Dates: start: 20190625
  96. XOLAIR [Suspect]
     Active Substance: OMALIZUMAB
     Indication: Anaphylactic reaction
     Dosage: UNK
     Route: 058
     Dates: start: 20190625
  97. XOLAIR [Suspect]
     Active Substance: OMALIZUMAB
     Indication: Urticaria
     Dosage: UNK
     Route: 058
     Dates: start: 20190625
  98. XOLAIR [Suspect]
     Active Substance: OMALIZUMAB
     Indication: Angioedema
     Dosage: 300 MG, Q3WEEKS
     Route: 058
     Dates: start: 20190717
  99. XOLAIR [Suspect]
     Active Substance: OMALIZUMAB
     Indication: Chronic spontaneous urticaria
     Dosage: 300 MG, Q3WEEKS
     Route: 058
     Dates: start: 20190717
  100. XOLAIR [Suspect]
     Active Substance: OMALIZUMAB
     Indication: Anaphylactic reaction
     Dosage: 300 MG, Q3WEEKS
     Route: 058
     Dates: start: 20190717
  101. XOLAIR [Suspect]
     Active Substance: OMALIZUMAB
     Indication: Urticaria
     Dosage: 300 MG, Q3WEEKS
     Route: 058
     Dates: start: 20190717
  102. XOLAIR [Suspect]
     Active Substance: OMALIZUMAB
     Indication: Angioedema
     Dosage: 300 MG, Q3WEEKS
     Route: 058
     Dates: start: 20190806
  103. XOLAIR [Suspect]
     Active Substance: OMALIZUMAB
     Indication: Chronic spontaneous urticaria
     Dosage: 300 MG, Q3WEEKS
     Route: 058
     Dates: start: 20190806
  104. XOLAIR [Suspect]
     Active Substance: OMALIZUMAB
     Indication: Anaphylactic reaction
     Dosage: 300 MG, Q3WEEKS
     Route: 058
     Dates: start: 20190806
  105. XOLAIR [Suspect]
     Active Substance: OMALIZUMAB
     Indication: Urticaria
     Dosage: 300 MG, Q3WEEKS
     Route: 058
     Dates: start: 20190806
  106. XOLAIR [Suspect]
     Active Substance: OMALIZUMAB
     Indication: Angioedema
     Dosage: 300 MG, Q3WEEKS
     Route: 058
     Dates: start: 20190827
  107. XOLAIR [Suspect]
     Active Substance: OMALIZUMAB
     Indication: Chronic spontaneous urticaria
     Dosage: 300 MG, Q3WEEKS
     Route: 058
     Dates: start: 20190827
  108. XOLAIR [Suspect]
     Active Substance: OMALIZUMAB
     Indication: Anaphylactic reaction
     Dosage: 300 MG, Q3WEEKS
     Route: 058
     Dates: start: 20190827
  109. XOLAIR [Suspect]
     Active Substance: OMALIZUMAB
     Indication: Urticaria
     Dosage: 300 MG, Q3WEEKS
     Route: 058
     Dates: start: 20190827
  110. XOLAIR [Suspect]
     Active Substance: OMALIZUMAB
     Indication: Angioedema
     Dosage: 300 MG, Q3WEEKS
     Route: 058
     Dates: start: 20190917
  111. XOLAIR [Suspect]
     Active Substance: OMALIZUMAB
     Indication: Chronic spontaneous urticaria
     Dosage: 300 MG, Q3WEEKS
     Route: 058
     Dates: start: 20190917
  112. XOLAIR [Suspect]
     Active Substance: OMALIZUMAB
     Indication: Anaphylactic reaction
     Dosage: 300 MG, Q3WEEKS
     Route: 058
     Dates: start: 20190917
  113. XOLAIR [Suspect]
     Active Substance: OMALIZUMAB
     Indication: Urticaria
     Dosage: 300 MG, Q3WEEKS
     Route: 058
     Dates: start: 20190917
  114. XOLAIR [Suspect]
     Active Substance: OMALIZUMAB
     Indication: Angioedema
     Dosage: 300 MG, Q3WEEKS
     Route: 058
     Dates: start: 20191008
  115. XOLAIR [Suspect]
     Active Substance: OMALIZUMAB
     Indication: Chronic spontaneous urticaria
     Dosage: 300 MG, Q3WEEKS
     Route: 058
     Dates: start: 20191008
  116. XOLAIR [Suspect]
     Active Substance: OMALIZUMAB
     Indication: Anaphylactic reaction
     Dosage: 300 MG, Q3WEEKS
     Route: 058
     Dates: start: 20191008
  117. XOLAIR [Suspect]
     Active Substance: OMALIZUMAB
     Indication: Urticaria
     Dosage: 300 MG, Q3WEEKS
     Route: 058
     Dates: start: 20191008
  118. XOLAIR [Suspect]
     Active Substance: OMALIZUMAB
     Indication: Angioedema
     Dosage: 300 MG, Q3WEEKS
     Route: 058
     Dates: start: 20191029, end: 20191029
  119. XOLAIR [Suspect]
     Active Substance: OMALIZUMAB
     Indication: Chronic spontaneous urticaria
     Dosage: 300 MG, Q3WEEKS
     Route: 058
     Dates: start: 20191029, end: 20191029
  120. XOLAIR [Suspect]
     Active Substance: OMALIZUMAB
     Indication: Anaphylactic reaction
     Dosage: 300 MG, Q3WEEKS
     Route: 058
     Dates: start: 20191029, end: 20191029
  121. XOLAIR [Suspect]
     Active Substance: OMALIZUMAB
     Indication: Urticaria
     Dosage: 300 MG, Q3WEEKS
     Route: 058
     Dates: start: 20191029, end: 20191029
  122. XOLAIR [Suspect]
     Active Substance: OMALIZUMAB
     Indication: Angioedema
     Dosage: 300 MG, Q3WEEKS
     Route: 058
     Dates: start: 20191210
  123. XOLAIR [Suspect]
     Active Substance: OMALIZUMAB
     Indication: Chronic spontaneous urticaria
     Dosage: 300 MG, Q3WEEKS
     Route: 058
     Dates: start: 20191210
  124. XOLAIR [Suspect]
     Active Substance: OMALIZUMAB
     Indication: Anaphylactic reaction
     Dosage: 300 MG, Q3WEEKS
     Route: 058
     Dates: start: 20191210
  125. XOLAIR [Suspect]
     Active Substance: OMALIZUMAB
     Indication: Urticaria
     Dosage: 300 MG, Q3WEEKS
     Route: 058
     Dates: start: 20191210
  126. XOLAIR [Suspect]
     Active Substance: OMALIZUMAB
     Indication: Angioedema
     Dosage: 300 MG, Q3WEEKS
     Route: 058
     Dates: start: 20200123
  127. XOLAIR [Suspect]
     Active Substance: OMALIZUMAB
     Indication: Chronic spontaneous urticaria
     Dosage: 300 MG, Q3WEEKS
     Route: 058
     Dates: start: 20200123
  128. XOLAIR [Suspect]
     Active Substance: OMALIZUMAB
     Indication: Anaphylactic reaction
     Dosage: 300 MG, Q3WEEKS
     Route: 058
     Dates: start: 20200123
  129. XOLAIR [Suspect]
     Active Substance: OMALIZUMAB
     Indication: Urticaria
     Dosage: 300 MG, Q3WEEKS
     Route: 058
     Dates: start: 20200123
  130. XOLAIR [Suspect]
     Active Substance: OMALIZUMAB
     Indication: Angioedema
     Dosage: 300 MG, Q3WEEKS
     Route: 058
     Dates: start: 20200216
  131. XOLAIR [Suspect]
     Active Substance: OMALIZUMAB
     Indication: Chronic spontaneous urticaria
     Dosage: 300 MG, Q3WEEKS
     Route: 058
     Dates: start: 20200216
  132. XOLAIR [Suspect]
     Active Substance: OMALIZUMAB
     Indication: Anaphylactic reaction
     Dosage: 300 MG, Q3WEEKS
     Route: 058
     Dates: start: 20200216
  133. XOLAIR [Suspect]
     Active Substance: OMALIZUMAB
     Indication: Urticaria
     Dosage: 300 MG, Q3WEEKS
     Route: 058
     Dates: start: 20200216
  134. XOLAIR [Suspect]
     Active Substance: OMALIZUMAB
     Indication: Angioedema
     Dosage: 300 MG, Q3WEEKS
     Route: 058
     Dates: start: 20200303
  135. XOLAIR [Suspect]
     Active Substance: OMALIZUMAB
     Indication: Chronic spontaneous urticaria
     Dosage: 300 MG, Q3WEEKS
     Route: 058
     Dates: start: 20200303
  136. XOLAIR [Suspect]
     Active Substance: OMALIZUMAB
     Indication: Anaphylactic reaction
     Dosage: 300 MG, Q3WEEKS
     Route: 058
     Dates: start: 20200303
  137. XOLAIR [Suspect]
     Active Substance: OMALIZUMAB
     Indication: Urticaria
     Dosage: 300 MG, Q3WEEKS
     Route: 058
     Dates: start: 20200303
  138. XOLAIR [Suspect]
     Active Substance: OMALIZUMAB
     Indication: Angioedema
     Route: 058
     Dates: start: 20200328
  139. XOLAIR [Suspect]
     Active Substance: OMALIZUMAB
     Indication: Chronic spontaneous urticaria
     Route: 058
     Dates: start: 20200328
  140. XOLAIR [Suspect]
     Active Substance: OMALIZUMAB
     Indication: Anaphylactic reaction
     Route: 058
     Dates: start: 20200328
  141. XOLAIR [Suspect]
     Active Substance: OMALIZUMAB
     Indication: Urticaria
     Route: 058
     Dates: start: 20200328
  142. XOLAIR [Suspect]
     Active Substance: OMALIZUMAB
     Indication: Angioedema
     Route: 058
     Dates: start: 20200421
  143. XOLAIR [Suspect]
     Active Substance: OMALIZUMAB
     Indication: Chronic spontaneous urticaria
     Route: 058
     Dates: start: 20200421
  144. XOLAIR [Suspect]
     Active Substance: OMALIZUMAB
     Indication: Anaphylactic reaction
     Route: 058
     Dates: start: 20200421
  145. XOLAIR [Suspect]
     Active Substance: OMALIZUMAB
     Indication: Urticaria
     Route: 058
     Dates: start: 20200421
  146. XOLAIR [Suspect]
     Active Substance: OMALIZUMAB
     Indication: Angioedema
     Dosage: UNK
     Route: 058
     Dates: start: 20200814
  147. XOLAIR [Suspect]
     Active Substance: OMALIZUMAB
     Indication: Chronic spontaneous urticaria
     Dosage: UNK
     Route: 058
     Dates: start: 20200814
  148. XOLAIR [Suspect]
     Active Substance: OMALIZUMAB
     Indication: Anaphylactic reaction
     Dosage: UNK
     Route: 058
     Dates: start: 20200814
  149. XOLAIR [Suspect]
     Active Substance: OMALIZUMAB
     Indication: Urticaria
     Dosage: UNK
     Route: 058
     Dates: start: 20200814
  150. XOLAIR [Suspect]
     Active Substance: OMALIZUMAB
     Indication: Angioedema
     Dosage: UNK
     Route: 058
     Dates: start: 20200823
  151. XOLAIR [Suspect]
     Active Substance: OMALIZUMAB
     Indication: Chronic spontaneous urticaria
     Dosage: UNK
     Route: 058
     Dates: start: 20200823
  152. XOLAIR [Suspect]
     Active Substance: OMALIZUMAB
     Indication: Anaphylactic reaction
     Dosage: UNK
     Route: 058
     Dates: start: 20200823
  153. XOLAIR [Suspect]
     Active Substance: OMALIZUMAB
     Indication: Urticaria
     Dosage: UNK
     Route: 058
     Dates: start: 20200823
  154. XOLAIR [Suspect]
     Active Substance: OMALIZUMAB
     Indication: Angioedema
     Dosage: 300 MG, Q4WEEKS
     Route: 058
     Dates: start: 20210107
  155. XOLAIR [Suspect]
     Active Substance: OMALIZUMAB
     Indication: Chronic spontaneous urticaria
     Dosage: 300 MG, Q4WEEKS
     Route: 058
     Dates: start: 20210107
  156. XOLAIR [Suspect]
     Active Substance: OMALIZUMAB
     Indication: Anaphylactic reaction
     Dosage: 300 MG, Q4WEEKS
     Route: 058
     Dates: start: 20210107
  157. XOLAIR [Suspect]
     Active Substance: OMALIZUMAB
     Indication: Urticaria
     Dosage: 300 MG, Q4WEEKS
     Route: 058
     Dates: start: 20210107
  158. XOLAIR [Suspect]
     Active Substance: OMALIZUMAB
     Indication: Angioedema
     Dosage: 300 MG, Q3WEEKS
     Route: 058
     Dates: start: 20210119
  159. XOLAIR [Suspect]
     Active Substance: OMALIZUMAB
     Indication: Chronic spontaneous urticaria
     Dosage: 300 MG, Q3WEEKS
     Route: 058
     Dates: start: 20210119
  160. XOLAIR [Suspect]
     Active Substance: OMALIZUMAB
     Indication: Anaphylactic reaction
     Dosage: 300 MG, Q3WEEKS
     Route: 058
     Dates: start: 20210119
  161. XOLAIR [Suspect]
     Active Substance: OMALIZUMAB
     Indication: Urticaria
     Dosage: 300 MG, Q3WEEKS
     Route: 058
     Dates: start: 20210119
  162. XOLAIR [Suspect]
     Active Substance: OMALIZUMAB
     Indication: Angioedema
     Route: 058
     Dates: start: 20210209
  163. XOLAIR [Suspect]
     Active Substance: OMALIZUMAB
     Indication: Chronic spontaneous urticaria
     Route: 058
     Dates: start: 20210209
  164. XOLAIR [Suspect]
     Active Substance: OMALIZUMAB
     Indication: Anaphylactic reaction
     Route: 058
     Dates: start: 20210209
  165. XOLAIR [Suspect]
     Active Substance: OMALIZUMAB
     Indication: Urticaria
     Route: 058
     Dates: start: 20210209
  166. XOLAIR [Suspect]
     Active Substance: OMALIZUMAB
     Indication: Angioedema
     Route: 058
     Dates: start: 20210518
  167. XOLAIR [Suspect]
     Active Substance: OMALIZUMAB
     Indication: Chronic spontaneous urticaria
     Route: 058
     Dates: start: 20210518
  168. XOLAIR [Suspect]
     Active Substance: OMALIZUMAB
     Indication: Anaphylactic reaction
     Route: 058
     Dates: start: 20210518
  169. XOLAIR [Suspect]
     Active Substance: OMALIZUMAB
     Indication: Urticaria
     Route: 058
     Dates: start: 20210518
  170. XOLAIR [Suspect]
     Active Substance: OMALIZUMAB
     Indication: Angioedema
     Dosage: 300 MG, Q3WEEKS
     Route: 058
     Dates: start: 20210629
  171. XOLAIR [Suspect]
     Active Substance: OMALIZUMAB
     Indication: Chronic spontaneous urticaria
     Dosage: 300 MG, Q3WEEKS
     Route: 058
     Dates: start: 20210629
  172. XOLAIR [Suspect]
     Active Substance: OMALIZUMAB
     Indication: Anaphylactic reaction
     Dosage: 300 MG, Q3WEEKS
     Route: 058
     Dates: start: 20210629
  173. XOLAIR [Suspect]
     Active Substance: OMALIZUMAB
     Indication: Urticaria
     Dosage: 300 MG, Q3WEEKS
     Route: 058
     Dates: start: 20210629
  174. XOLAIR [Suspect]
     Active Substance: OMALIZUMAB
     Indication: Angioedema
     Dosage: 300 MG, Q3WEEKS
     Route: 058
     Dates: start: 20210713
  175. XOLAIR [Suspect]
     Active Substance: OMALIZUMAB
     Indication: Chronic spontaneous urticaria
     Dosage: 300 MG, Q3WEEKS
     Route: 058
     Dates: start: 20210713
  176. XOLAIR [Suspect]
     Active Substance: OMALIZUMAB
     Indication: Anaphylactic reaction
     Dosage: 300 MG, Q3WEEKS
     Route: 058
     Dates: start: 20210713
  177. XOLAIR [Suspect]
     Active Substance: OMALIZUMAB
     Indication: Urticaria
     Dosage: 300 MG, Q3WEEKS
     Route: 058
     Dates: start: 20210713
  178. XOLAIR [Suspect]
     Active Substance: OMALIZUMAB
     Indication: Angioedema
     Route: 058
     Dates: start: 20210813
  179. XOLAIR [Suspect]
     Active Substance: OMALIZUMAB
     Indication: Chronic spontaneous urticaria
     Route: 058
     Dates: start: 20210813
  180. XOLAIR [Suspect]
     Active Substance: OMALIZUMAB
     Indication: Anaphylactic reaction
     Route: 058
     Dates: start: 20210813
  181. XOLAIR [Suspect]
     Active Substance: OMALIZUMAB
     Indication: Urticaria
     Route: 058
     Dates: start: 20210813
  182. XOLAIR [Suspect]
     Active Substance: OMALIZUMAB
     Indication: Angioedema
     Route: 058
     Dates: start: 20210831
  183. XOLAIR [Suspect]
     Active Substance: OMALIZUMAB
     Indication: Chronic spontaneous urticaria
     Route: 058
     Dates: start: 20210831
  184. XOLAIR [Suspect]
     Active Substance: OMALIZUMAB
     Indication: Anaphylactic reaction
     Route: 058
     Dates: start: 20210831
  185. XOLAIR [Suspect]
     Active Substance: OMALIZUMAB
     Indication: Urticaria
     Route: 058
     Dates: start: 20210831
  186. XOLAIR [Suspect]
     Active Substance: OMALIZUMAB
     Indication: Angioedema
     Route: 058
     Dates: start: 20220208
  187. XOLAIR [Suspect]
     Active Substance: OMALIZUMAB
     Indication: Chronic spontaneous urticaria
     Route: 058
     Dates: start: 20220208
  188. XOLAIR [Suspect]
     Active Substance: OMALIZUMAB
     Indication: Anaphylactic reaction
     Route: 058
     Dates: start: 20220208
  189. XOLAIR [Suspect]
     Active Substance: OMALIZUMAB
     Indication: Urticaria
     Route: 058
     Dates: start: 20220208
  190. XOLAIR [Suspect]
     Active Substance: OMALIZUMAB
     Indication: Angioedema
     Route: 058
  191. XOLAIR [Suspect]
     Active Substance: OMALIZUMAB
     Indication: Chronic spontaneous urticaria
     Route: 058
  192. XOLAIR [Suspect]
     Active Substance: OMALIZUMAB
     Indication: Anaphylactic reaction
     Route: 058
  193. XOLAIR [Suspect]
     Active Substance: OMALIZUMAB
     Indication: Urticaria
     Route: 058
  194. EPIPEN [Concomitant]
     Active Substance: EPINEPHRINE
     Indication: Anaphylactic reaction
     Dosage: UNK
     Dates: start: 201807
  195. EPIPEN [Concomitant]
     Active Substance: EPINEPHRINE
     Indication: Hypersensitivity
     Dosage: UNK
     Dates: start: 201807
  196. EPIPEN [Concomitant]
     Active Substance: EPINEPHRINE
     Indication: Anaphylactic reaction
     Dosage: UNK, TWICE
     Dates: start: 20190920
  197. EPIPEN [Concomitant]
     Active Substance: EPINEPHRINE
     Indication: Hypersensitivity
     Dosage: UNK, TWICE
     Dates: start: 20190920
  198. EPIPEN [Concomitant]
     Active Substance: EPINEPHRINE
     Indication: Anaphylactic reaction
     Dosage: UNK, TWICE
     Dates: start: 20190920
  199. EPIPEN [Concomitant]
     Active Substance: EPINEPHRINE
     Indication: Hypersensitivity
     Dosage: UNK, TWICE
     Dates: start: 20190920
  200. EPIPEN [Concomitant]
     Active Substance: EPINEPHRINE
     Indication: Anaphylactic reaction
     Dosage: UNK, TWICE
     Dates: start: 20190921
  201. EPIPEN [Concomitant]
     Active Substance: EPINEPHRINE
     Indication: Hypersensitivity
     Dosage: UNK, TWICE
     Dates: start: 20190921
  202. EPIPEN [Concomitant]
     Active Substance: EPINEPHRINE
     Indication: Anaphylactic reaction
     Dosage: UNK, 4 TIMES
     Dates: start: 20190924
  203. EPIPEN [Concomitant]
     Active Substance: EPINEPHRINE
     Indication: Hypersensitivity
     Dosage: UNK, 4 TIMES
     Dates: start: 20190924
  204. EPIPEN [Concomitant]
     Active Substance: EPINEPHRINE
     Indication: Anaphylactic reaction
     Dosage: UNK, TWICE
     Dates: start: 20191013
  205. EPIPEN [Concomitant]
     Active Substance: EPINEPHRINE
     Indication: Hypersensitivity
     Dosage: UNK, TWICE
     Dates: start: 20191013
  206. EPIPEN [Concomitant]
     Active Substance: EPINEPHRINE
     Indication: Anaphylactic reaction
     Dosage: UNK, TWICE
     Dates: start: 20191019
  207. EPIPEN [Concomitant]
     Active Substance: EPINEPHRINE
     Indication: Hypersensitivity
     Dosage: UNK, TWICE
     Dates: start: 20191019
  208. EPIPEN [Concomitant]
     Active Substance: EPINEPHRINE
     Indication: Anaphylactic reaction
     Dosage: UNK, TWICE
     Dates: start: 20191021
  209. EPIPEN [Concomitant]
     Active Substance: EPINEPHRINE
     Indication: Hypersensitivity
     Dosage: UNK, TWICE
     Dates: start: 20191021
  210. EPIPEN [Concomitant]
     Active Substance: EPINEPHRINE
     Indication: Anaphylactic reaction
     Dosage: UNK, 2 TIMES
     Dates: start: 20191113, end: 20191113
  211. EPIPEN [Concomitant]
     Active Substance: EPINEPHRINE
     Indication: Hypersensitivity
     Dosage: UNK, 2 TIMES
     Dates: start: 20191113, end: 20191113
  212. EPIPEN [Concomitant]
     Active Substance: EPINEPHRINE
     Indication: Anaphylactic reaction
     Dosage: UNK, TWICE
     Dates: start: 20191115
  213. EPIPEN [Concomitant]
     Active Substance: EPINEPHRINE
     Indication: Hypersensitivity
     Dosage: UNK, TWICE
     Dates: start: 20191115
  214. EPIPEN [Concomitant]
     Active Substance: EPINEPHRINE
     Indication: Anaphylactic reaction
     Dosage: UNK, TWICE
     Dates: start: 20200220
  215. EPIPEN [Concomitant]
     Active Substance: EPINEPHRINE
     Indication: Hypersensitivity
     Dosage: UNK, TWICE
     Dates: start: 20200220
  216. EPIPEN [Concomitant]
     Active Substance: EPINEPHRINE
     Indication: Anaphylactic reaction
     Dosage: UNK, TWICE
     Dates: start: 20200228
  217. EPIPEN [Concomitant]
     Active Substance: EPINEPHRINE
     Indication: Hypersensitivity
     Dosage: UNK, TWICE
     Dates: start: 20200228
  218. EPIPEN [Concomitant]
     Active Substance: EPINEPHRINE
     Indication: Anaphylactic reaction
     Dosage: 2 DF
     Dates: start: 20210606
  219. EPIPEN [Concomitant]
     Active Substance: EPINEPHRINE
     Indication: Hypersensitivity
     Dosage: 2 DF
     Dates: start: 20210606
  220. EPIPEN [Concomitant]
     Active Substance: EPINEPHRINE
     Indication: Anaphylactic reaction
     Dosage: UNK
     Dates: start: 20210706
  221. EPIPEN [Concomitant]
     Active Substance: EPINEPHRINE
     Indication: Hypersensitivity
     Dosage: UNK
     Dates: start: 20210706
  222. EPIPEN [Concomitant]
     Active Substance: EPINEPHRINE
     Indication: Anaphylactic reaction
     Dosage: UNK
     Dates: start: 20210707
  223. EPIPEN [Concomitant]
     Active Substance: EPINEPHRINE
     Indication: Hypersensitivity
     Dosage: UNK
     Dates: start: 20210707
  224. EPIPEN [Concomitant]
     Active Substance: EPINEPHRINE
     Indication: Anaphylactic reaction
     Dosage: UNK
     Dates: start: 20210712
  225. EPIPEN [Concomitant]
     Active Substance: EPINEPHRINE
     Indication: Hypersensitivity
     Dosage: UNK
     Dates: start: 20210712
  226. EPIPEN [Concomitant]
     Active Substance: EPINEPHRINE
     Indication: Anaphylactic reaction
     Dosage: 2 DF
     Dates: start: 20210722
  227. EPIPEN [Concomitant]
     Active Substance: EPINEPHRINE
     Indication: Hypersensitivity
     Dosage: 2 DF
     Dates: start: 20210722
  228. EPIPEN [Concomitant]
     Active Substance: EPINEPHRINE
     Indication: Anaphylactic reaction
     Dosage: UNK
     Dates: start: 20220214
  229. EPIPEN [Concomitant]
     Active Substance: EPINEPHRINE
     Indication: Hypersensitivity
     Dosage: UNK
     Dates: start: 20220214
  230. EPIPEN [Concomitant]
     Active Substance: EPINEPHRINE
     Indication: Anaphylactic reaction
     Dates: start: 20220216
  231. EPIPEN [Concomitant]
     Active Substance: EPINEPHRINE
     Indication: Hypersensitivity
     Dates: start: 20220216
  232. EPIPEN [Concomitant]
     Active Substance: EPINEPHRINE
     Indication: Anaphylactic reaction
     Dosage: UNK
     Dates: start: 20220221
  233. EPIPEN [Concomitant]
     Active Substance: EPINEPHRINE
     Indication: Hypersensitivity
     Dosage: UNK
     Dates: start: 20220221
  234. BILASTINE [Concomitant]
     Active Substance: BILASTINE
     Dosage: 1 DF, QD
     Route: 048
  235. ALLEGRA [Concomitant]
     Active Substance: FEXOFENADINE HYDROCHLORIDE
     Indication: Product used for unknown indication
     Dosage: 1 DF, QD
     Route: 048
  236. VENTOLIN [Concomitant]
     Active Substance: ALBUTEROL SULFATE
     Indication: Product used for unknown indication
     Dosage: 1 DF, QD
     Route: 055
  237. BENADRYL [Concomitant]
     Active Substance: DIPHENHYDRAMINE HYDROCHLORIDE
     Dosage: 50 MG, DAILY
     Route: 048
  238. ZANTAC [Concomitant]
     Active Substance: RANITIDINE HYDROCHLORIDE
     Indication: Product used for unknown indication
     Dosage: 1 DF, QD
     Route: 048
  239. CLARITIN [Concomitant]
     Active Substance: LORATADINE
     Indication: Product used for unknown indication
     Dosage: 1 DF, QD
     Route: 048
  240. ATIVAN [Concomitant]
     Active Substance: LORAZEPAM
     Indication: Product used for unknown indication
     Dosage: 1 DF, QD
     Route: 060
  241. ATIVAN [Concomitant]
     Active Substance: LORAZEPAM
     Indication: Product used for unknown indication
     Dosage: QHS
  242. CROMOLYN SODIUM [Concomitant]
     Active Substance: CROMOLYN SODIUM
     Dosage: UNK
  243. NASONEX [Concomitant]
     Active Substance: MOMETASONE FUROATE
     Indication: Product used for unknown indication
     Dosage: 1 DF, QD
     Route: 045
  244. CROMOLYN [Concomitant]
     Active Substance: CROMOLYN
     Dosage: 200 MG
     Route: 048
  245. CROMOLYN [Concomitant]
     Active Substance: CROMOLYN
     Dosage: 400 MG
     Route: 048
  246. ALEVE [Concomitant]
     Active Substance: NAPROXEN SODIUM
     Indication: Product used for unknown indication
     Dosage: 220 MG UNK
     Route: 048
  247. MEDROL [Concomitant]
     Active Substance: METHYLPREDNISOLONE
     Dosage: 2 DF
     Route: 048
  248. FLUCONAZOLE [Concomitant]
     Active Substance: FLUCONAZOLE
     Dosage: 150 MG, DAILY
     Route: 048
     Dates: start: 20190618
  249. RUPATADINE [Concomitant]
     Active Substance: RUPATADINE
     Indication: Product used for unknown indication
     Dosage: UNK
  250. RUPATADINE [Concomitant]
     Active Substance: RUPATADINE
     Indication: Product used for unknown indication
     Dosage: 10 MG AT 13:30
  251. ONDANSETRON [Concomitant]
     Active Substance: ONDANSETRON
     Indication: Product used for unknown indication
     Dosage: UNK
     Route: 042
  252. ONDANSETRON [Concomitant]
     Active Substance: ONDANSETRON
     Indication: Product used for unknown indication
     Dosage: 2 MG AT 13:30
     Route: 042
  253. FAMOTIDINE [Concomitant]
     Active Substance: FAMOTIDINE
     Indication: Product used for unknown indication
     Dosage: 10 MG AT 13:30
     Route: 042
  254. FAMOTIDINE [Concomitant]
     Active Substance: FAMOTIDINE
     Indication: Product used for unknown indication
     Dosage: UNK
     Route: 042
  255. GABAPENTIN [Concomitant]
     Active Substance: GABAPENTIN
     Dosage: 100 MG, BID (1-2 CAPS)

REACTIONS (27)
  - Headache [Recovering/Resolving]
  - Fatigue [Unknown]
  - Nausea [Unknown]
  - Dizziness [Unknown]
  - Diarrhoea [Unknown]
  - Cough [Unknown]
  - Pyrexia [Unknown]
  - Anaphylactic reaction [Recovered/Resolved]
  - Illness [Unknown]
  - Stress [Unknown]
  - Nerve compression [Recovered/Resolved]
  - Muscle spasms [Unknown]
  - Neuralgia [Unknown]
  - Arthralgia [Unknown]
  - Myalgia [Unknown]
  - Fall [Unknown]
  - Confusional state [Unknown]
  - Migraine [Unknown]
  - Heart rate abnormal [Unknown]
  - Nasal disorder [Unknown]
  - Insomnia [Unknown]
  - Condition aggravated [Recovering/Resolving]
  - Anaphylactic reaction [Recovered/Resolved]
  - Oral candidiasis [Not Recovered/Not Resolved]
  - Sinus congestion [Not Recovered/Not Resolved]
  - Sneezing [Not Recovered/Not Resolved]
  - Condition aggravated [Not Recovered/Not Resolved]

NARRATIVE: CASE EVENT DATE: 20190507
